FAERS Safety Report 6531477-3 (Version None)
Quarter: 2010Q1

REPORT INFORMATION
  Report Type: 
  Country: None (occurrence: None)
  Receive Date: 20100108
  Receipt Date: 20090903
  Transmission Date: 20100710
  Serious: No
  Sender: FDA-Public Use
  Company Number: US-BAYER-200914199BCC

PATIENT
  Age: 61 Year
  Sex: Female
  Weight: 47 kg

DRUGS (4)
  1. ALEVE (CAPLET) [Suspect]
     Indication: BACK PAIN
     Dosage: TOTAL DAILY DOSE: 440 MG  UNIT DOSE: 220 MG
     Route: 048
     Dates: start: 20090827, end: 20090903
  2. HYDROCODONE BITARTRATE [Suspect]
     Indication: BACK PAIN
     Dosage: TOTAL DAILY DOSE: 4 DF  UNIT DOSE: 1 DF
     Route: 065
     Dates: start: 20090827, end: 20090901
  3. HYDROCODONE BITARTRATE [Suspect]
     Dosage: TOTAL DAILY DOSE: 1 DF  UNIT DOSE: 1 DF
     Route: 065
     Dates: start: 20090902, end: 20090902
  4. HYDROCODONE BITARTRATE [Suspect]
     Dosage: TOTAL DAILY DOSE: 2 DF  UNIT DOSE: 1 DF
     Route: 065
     Dates: start: 20090903, end: 20090903

REACTIONS (1)
  - VISION BLURRED [None]
